FAERS Safety Report 21066811 (Version 1)
Quarter: 2022Q3

REPORT INFORMATION
  Report Type: Spontaneous
  Country: US (occurrence: US)
  Receive Date: 20220712
  Receipt Date: 20220712
  Transmission Date: 20221027
  Serious: Yes (Other)
  Sender: FDA-Public Use
  Company Number: US-AUROBINDO-AUR-APL-2022-025206

PATIENT
  Age: 13 Year
  Sex: Female

DRUGS (4)
  1. METHOTREXATE [Suspect]
     Active Substance: METHOTREXATE
     Indication: Acute lymphocytic leukaemia
     Dosage: UNK
     Route: 065
  2. PREDNISONE [Suspect]
     Active Substance: PREDNISONE
     Indication: Acute lymphocytic leukaemia
     Dosage: UNK
     Route: 065
  3. RUXOLITINIB [Concomitant]
     Active Substance: RUXOLITINIB
     Indication: Chemotherapy
     Dosage: 50 MILLIGRAM/SQ. METER, TWO TIMES A DAY
     Route: 065
  4. POSACONAZOLE [Concomitant]
     Active Substance: POSACONAZOLE
     Indication: Nodule
     Dosage: UNK
     Route: 065

REACTIONS (2)
  - Neurotoxicity [Unknown]
  - Osteonecrosis [Unknown]
